FAERS Safety Report 19307781 (Version 4)
Quarter: 2021Q3

REPORT INFORMATION
  Report Type: Report from Study
  Country: IE (occurrence: IE)
  Receive Date: 20210526
  Receipt Date: 20210720
  Transmission Date: 20211014
  Serious: Yes (Other)
  Sender: FDA-Public Use
  Company Number: NVSC2021IE108580

PATIENT
  Sex: Female
  Weight: 75 kg

DRUGS (1)
  1. RIBOCICLIB. [Suspect]
     Active Substance: RIBOCICLIB
     Indication: BREAST CANCER METASTATIC
     Dosage: 600 MG
     Route: 048
     Dates: start: 20210427

REACTIONS (11)
  - Blood urea increased [Unknown]
  - Mean cell haemoglobin concentration decreased [Unknown]
  - Pancytopenia [Unknown]
  - Normocytic anaemia [Unknown]
  - Red cell distribution width increased [Unknown]
  - Red blood cell count decreased [Unknown]
  - Electrocardiogram QT prolonged [Unknown]
  - Contusion [Recovered/Resolved]
  - Leukopenia [Unknown]
  - Thrombocytopenia [Unknown]
  - Arthralgia [Recovered/Resolved]
